FAERS Safety Report 24539817 (Version 1)
Quarter: 2024Q4

REPORT INFORMATION
  Report Type: Spontaneous
  Country: DE (occurrence: DE)
  Receive Date: 20241023
  Receipt Date: 20241023
  Transmission Date: 20250115
  Serious: Yes (Hospitalization, Disabling, Other)
  Sender: SANDOZ
  Company Number: DE-NOVPHSZ-PHHY2019DE173377

PATIENT
  Age: 47 Year
  Sex: Female
  Weight: 83 kg

DRUGS (5)
  1. CIPROFLOXACIN [Suspect]
     Active Substance: CIPROFLOXACIN
     Dosage: 500 MG, Q12H(500 MG 1-0-1 F?R 10 TAGE)
     Route: 048
     Dates: start: 20180814
  2. CIPROFLOXACIN [Suspect]
     Active Substance: CIPROFLOXACIN
     Dosage: 500 MG, Q12H(500 MG 1-0-1 F?R 5 TAGE)
     Route: 048
     Dates: start: 20171204
  3. CIPROFLOXACIN [Suspect]
     Active Substance: CIPROFLOXACIN
     Indication: Diverticulitis
     Dosage: 500 MG, UNK(1-0-1 FUR 10 TAGE)
     Route: 048
     Dates: start: 20150101
  4. BISOPROLOL [Concomitant]
     Active Substance: BISOPROLOL\BISOPROLOL FUMARATE
     Indication: Extrasystoles
     Dosage: UNK
     Route: 065
  5. LEVOTHYROXINE SODIUM [Concomitant]
     Active Substance: LEVOTHYROXINE SODIUM
     Indication: Hypothyroidism
     Dosage: UNK
     Route: 065

REACTIONS (6)
  - Myositis [Not Recovered/Not Resolved]
  - Panic attack [Not Recovered/Not Resolved]
  - Tendonitis [Not Recovered/Not Resolved]
  - Arthritis [Not Recovered/Not Resolved]
  - Arrhythmia [Not Recovered/Not Resolved]
  - Condition aggravated [Unknown]

NARRATIVE: CASE EVENT DATE: 20150301
